FAERS Safety Report 8354476-8 (Version None)
Quarter: 2012Q2

REPORT INFORMATION
  Report Type: 
  Country: None (occurrence: None)
  Receive Date: 20120511
  Receipt Date: 20120504
  Transmission Date: 20120825
  Serious: Yes (Hospitalization)
  Sender: FDA-Public Use
  Company Number: VE-ELI_LILLY_AND_COMPANY-VE201205002088

PATIENT
  Sex: Female

DRUGS (3)
  1. IRON [Concomitant]
     Dosage: UNK
     Route: 048
  2. HUMALOG MIX 75/25 [Suspect]
     Dosage: UNK, BID
     Dates: start: 20120321
  3. PLAVIX [Concomitant]
     Dosage: UNK
     Route: 048

REACTIONS (4)
  - DIARRHOEA [None]
  - VOMITING [None]
  - HYPERGLYCAEMIA [None]
  - DEHYDRATION [None]
